FAERS Safety Report 22688440 (Version 2)
Quarter: 2023Q4

REPORT INFORMATION
  Report Type: Report from Study
  Country: US (occurrence: US)
  Receive Date: 20230710
  Receipt Date: 20231213
  Transmission Date: 20240109
  Serious: Yes (Other)
  Sender: FDA-Public Use
  Company Number: US-TAKEDA-2023TUS024037

PATIENT
  Age: 54 Year
  Sex: Female

DRUGS (2)
  1. VEDOLIZUMAB [Suspect]
     Active Substance: VEDOLIZUMAB
     Indication: Colitis ulcerative
     Dosage: 300 MILLIGRAM
     Route: 042
     Dates: start: 20230327
  2. VEDOLIZUMAB [Suspect]
     Active Substance: VEDOLIZUMAB
     Indication: Pulmonary mass

REACTIONS (9)
  - Neoplasm malignant [Unknown]
  - Somnolence [Recovered/Resolved]
  - Pain in extremity [Not Recovered/Not Resolved]
  - Dizziness [Recovered/Resolved]
  - Confusional state [Recovered/Resolved]
  - Myalgia [Recovered/Resolved]
  - Lung disorder [Unknown]
  - Pulmonary mass [Unknown]
  - Off label use [Unknown]

NARRATIVE: CASE EVENT DATE: 20230327
